FAERS Safety Report 9796095 (Version 2)
Quarter: 2014Q1

REPORT INFORMATION
  Report Type: Spontaneous
  Country: US (occurrence: US)
  Receive Date: 20140103
  Receipt Date: 20140226
  Transmission Date: 20141002
  Serious: Yes (Hospitalization, Other)
  Sender: FDA-Public Use
  Company Number: US-009507513-1312USA012027

PATIENT
  Age: 46 Year
  Sex: Male

DRUGS (11)
  1. RALTEGRAVIR POTASSIUM [Suspect]
     Indication: HIV INFECTION
     Route: 048
  2. RALTEGRAVIR POTASSIUM [Interacting]
     Indication: HEPATITIS C
     Route: 048
  3. DARUNAVIR [Interacting]
     Indication: HIV INFECTION
  4. DARUNAVIR [Interacting]
     Indication: HEPATITIS C
  5. RITONAVIR [Interacting]
     Indication: HIV INFECTION
  6. RITONAVIR [Interacting]
     Indication: HEPATITIS C
  7. BUPROPION HYDROCHLORIDE [Concomitant]
  8. ETRAVIRINE [Concomitant]
  9. MARAVIROC [Concomitant]
  10. ACYCLOVIR [Concomitant]
  11. GASTROINTESTINAL PREPARATIONS (UNSPECIFIED) [Concomitant]

REACTIONS (1)
  - Drug-induced liver injury [Recovered/Resolved]
